FAERS Safety Report 5380931-9 (Version None)
Quarter: 2007Q3

REPORT INFORMATION
  Report Type: 
  Country: None (occurrence: None)
  Receive Date: 20070706
  Receipt Date: 20070626
  Transmission Date: 20080115
  Serious: Yes (Other)
  Sender: FDA-Public Use
  Company Number: AU-SANOFI-SYNTHELABO-A01200706904

PATIENT
  Age: 63 Year
  Sex: Male

DRUGS (1)
  1. ZOLPIDEM TARTRATE [Suspect]
     Indication: INSOMNIA
     Route: 048
     Dates: start: 20070608, end: 20070601

REACTIONS (4)
  - AMNESIA [None]
  - FALL [None]
  - MUSCLE INJURY [None]
  - SOMNAMBULISM [None]
